FAERS Safety Report 8809924 (Version 1)
Quarter: 2012Q4

REPORT INFORMATION
  Report Type: 
  Country: DE (occurrence: DE)
  Receive Date: 20120926
  Receipt Date: 20120926
  Transmission Date: 20130627
  Serious: Yes (Life-Threatening, Hospitalization)
  Sender: FDA-Public Use
  Company Number: DE-B.I. PHARMACEUTICALS,INC./RIDGEFIELD-2012-DE-02258DE

PATIENT
  Age: 82 Year
  Sex: Female

DRUGS (8)
  1. PRADAXA [Suspect]
     Indication: BASILAR ARTERY THROMBOSIS
     Dosage: 220 mg
     Route: 048
     Dates: start: 201111, end: 20120314
  2. PANTOPRAZOL [Concomitant]
     Dosage: 40 mg
  3. TORASEMID [Concomitant]
     Indication: HYPERTENSION
     Dosage: 40 mg
     Route: 048
  4. BISOPROLOL [Concomitant]
     Indication: HYPERTENSION
     Dosage: 5 mg - 0 - 1.25 mg
     Route: 048
  5. SIMVASTATIN [Concomitant]
     Indication: HYPERLIPIDAEMIA
     Dosage: 20 mg
     Route: 048
     Dates: start: 201108, end: 20120314
  6. ALLOPURINOL [Concomitant]
     Indication: HYPERURICAEMIA
     Dosage: 150 mg
     Route: 048
  7. NOVAMIN [Concomitant]
     Dosage: 2000 mg
  8. CIPRAMIL [Concomitant]
     Dosage: 10 mg

REACTIONS (4)
  - Asphyxia [Not Recovered/Not Resolved]
  - Dyspnoea [Not Recovered/Not Resolved]
  - Haemoptysis [Not Recovered/Not Resolved]
  - Rhonchi [Not Recovered/Not Resolved]
